FAERS Safety Report 6811401-6 (Version None)
Quarter: 2010Q2

REPORT INFORMATION
  Report Type: 
  Country: None (occurrence: None)
  Receive Date: 20100630
  Receipt Date: 20100510
  Transmission Date: 20101027
  Serious: No
  Sender: FDA-Public Use
  Company Number: US-AMGEN-KDL411911

PATIENT
  Sex: Female
  Weight: 50.4 kg

DRUGS (6)
  1. PROCRIT [Suspect]
     Indication: ANAEMIA OF MALIGNANT DISEASE
     Dates: start: 20100503
  2. UNSPECIFIED THYROID MEDICATION [Concomitant]
  3. EVISTA [Concomitant]
  4. LYRICA [Concomitant]
     Route: 048
  5. DETROL [Concomitant]
  6. BLOOD CELLS, PACKED HUMAN [Concomitant]

REACTIONS (5)
  - ASTHENIA [None]
  - DECREASED APPETITE [None]
  - NAUSEA [None]
  - RASH [None]
  - VOMITING [None]
